FAERS Safety Report 10055522 (Version 5)
Quarter: 2016Q1

REPORT INFORMATION
  Report Type: Spontaneous
  Country: US (occurrence: US)
  Receive Date: 20140403
  Receipt Date: 20160217
  Transmission Date: 20160525
  Serious: Yes (Hospitalization)
  Sender: FDA-Public Use
  Company Number: US-ROCHE-1314329

PATIENT
  Sex: Female

DRUGS (18)
  1. PREVACID [Concomitant]
     Active Substance: LANSOPRAZOLE
  2. AMIODARONE [Concomitant]
     Active Substance: AMIODARONE
  3. ALDACTONE [Concomitant]
     Active Substance: SPIRONOLACTONE
  4. FISH OIL [Concomitant]
     Active Substance: FISH OIL
  5. B6 VICOTRAT [Concomitant]
  6. VITAMIN E [Concomitant]
     Active Substance: .ALPHA.-TOCOPHEROL
  7. XELODA [Suspect]
     Active Substance: CAPECITABINE
     Dosage: 3 TABLETS IN AM
     Route: 048
     Dates: start: 20130220
  8. XANAX [Concomitant]
     Active Substance: ALPRAZOLAM
  9. XELODA [Suspect]
     Active Substance: CAPECITABINE
     Indication: BREAST CANCER FEMALE
     Dosage: 500 MG, 3 IN MORNING AND 2 IN EVENING/ ONE WEEK ON ONE OFF
     Route: 048
     Dates: start: 20130219
  10. XELODA [Suspect]
     Active Substance: CAPECITABINE
     Dosage: 2 TABLETS IN PM
     Route: 048
     Dates: start: 20130220
  11. VITAMIN B6 [Concomitant]
     Active Substance: PYRIDOXINE HYDROCHLORIDE
  12. XELODA [Suspect]
     Active Substance: CAPECITABINE
     Route: 048
     Dates: start: 20130428
  13. XELODA [Suspect]
     Active Substance: CAPECITABINE
     Route: 048
     Dates: start: 20141116
  14. COUMADINE [Concomitant]
     Active Substance: WARFARIN SODIUM
  15. VITAMIN C [Concomitant]
     Active Substance: ASCORBIC ACID
  16. DIAZEPAM. [Suspect]
     Active Substance: DIAZEPAM
     Indication: PRODUCT USED FOR UNKNOWN INDICATION
     Route: 065
  17. XELODA [Suspect]
     Active Substance: CAPECITABINE
     Route: 048
     Dates: start: 20130428
  18. LASIX [Concomitant]
     Active Substance: FUROSEMIDE

REACTIONS (12)
  - Skin fissures [Recovering/Resolving]
  - Swelling [Unknown]
  - Skin hypertrophy [Unknown]
  - Skin fissures [Unknown]
  - Pain in extremity [Unknown]
  - Arthritis [Unknown]
  - Palmar-plantar erythrodysaesthesia syndrome [Unknown]
  - Micturition urgency [Unknown]
  - Balance disorder [Unknown]
  - Impaired healing [Unknown]
  - Cellulitis [Recovered/Resolved]
  - Skin exfoliation [Unknown]
